FAERS Safety Report 8144160-8 (Version None)
Quarter: 2012Q1

REPORT INFORMATION
  Report Type: 
  Country: None (occurrence: None)
  Receive Date: 20120217
  Receipt Date: 20120208
  Transmission Date: 20120608
  Serious: No
  Sender: FDA-Public Use
  Company Number: US-PFIZER INC-2012001119

PATIENT
  Sex: Female

DRUGS (6)
  1. ATIVAN [Suspect]
     Indication: STRESS
     Dosage: UNK
  2. LIDOCAINE HYDROCHLORIDE [Suspect]
     Indication: INDUCTION OF ANAESTHESIA
     Dosage: UNK
  3. ATIVAN [Suspect]
     Indication: PANIC ATTACK
  4. ATIVAN [Suspect]
     Indication: ANXIETY
  5. CODEINE [Concomitant]
  6. PHENYLEPHRINE HCL [Suspect]
     Dosage: UNK

REACTIONS (2)
  - HEART RATE INCREASED [None]
  - HYPERSENSITIVITY [None]
